FAERS Safety Report 12734000 (Version 1)
Quarter: 2016Q3

REPORT INFORMATION
  Report Type: Spontaneous
  Country: JP (occurrence: JP)
  Receive Date: 20160912
  Receipt Date: 20160912
  Transmission Date: 20161109
  Serious: Yes (Hospitalization)
  Sender: FDA-Public Use
  Company Number: JP-ELI_LILLY_AND_COMPANY-JP201609000047

PATIENT
  Sex: Male

DRUGS (2)
  1. TRULICITY [Suspect]
     Active Substance: DULAGLUTIDE
     Indication: TYPE 2 DIABETES MELLITUS
     Dosage: UNK
     Route: 058
     Dates: end: 2016
  2. NOVOLIN N [Concomitant]
     Active Substance: INSULIN HUMAN
     Dosage: UNK
     Dates: end: 201608

REACTIONS (2)
  - Hypoglycaemic coma [Unknown]
  - Hyperglycaemic unconsciousness [Unknown]

NARRATIVE: CASE EVENT DATE: 201608
